FAERS Safety Report 9213281 (Version 1)
Quarter: 2013Q2

REPORT INFORMATION
  Report Type: Spontaneous
  Country: US (occurrence: None)
  Receive Date: 20130404
  Receipt Date: 20130404
  Transmission Date: 20140414
  Serious: No
  Sender: FDA-Public Use
  Company Number: None

PATIENT
  Age: 59 Year
  Sex: Male

DRUGS (1)
  1. MODAFINIL [Suspect]
     Indication: DEPRESSION
     Dosage: 100MG  DAILY PO
     Route: 048
     Dates: start: 20120723, end: 20130109

REACTIONS (2)
  - Product substitution issue [None]
  - Therapeutic response decreased [None]
